FAERS Safety Report 24566531 (Version 2)
Quarter: 2024Q4

REPORT INFORMATION
  Report Type: Spontaneous
  Country: US (occurrence: US)
  Receive Date: 20241030
  Receipt Date: 20241122
  Transmission Date: 20250114
  Serious: No
  Sender: ROCHE
  Company Number: US-ROCHE-10000120222

PATIENT
  Sex: Male

DRUGS (2)
  1. HEMLIBRA [Suspect]
     Active Substance: EMICIZUMAB-KXWH
     Indication: Factor VIII deficiency
     Route: 058
     Dates: start: 202005
  2. KOVALTRY [Concomitant]
     Active Substance: ANTIHEMOPHILIC FACTOR, HUMAN RECOMBINANT

REACTIONS (7)
  - Pyrexia [Unknown]
  - Tremor [Unknown]
  - Viral infection [Unknown]
  - Haemorrhage [Unknown]
  - Fall [Unknown]
  - Ear injury [Unknown]
  - Ear swelling [Unknown]
